FAERS Safety Report 10026527 (Version 3)
Quarter: 2014Q2

REPORT INFORMATION
  Report Type: Spontaneous
  Country: US (occurrence: US)
  Receive Date: 20140321
  Receipt Date: 20140414
  Transmission Date: 20141212
  Serious: Yes (Hospitalization)
  Sender: FDA-Public Use
  Company Number: US-BIOGENIDEC-2014BI025178

PATIENT
  Sex: Female

DRUGS (1)
  1. TYSABRI [Suspect]
     Indication: MULTIPLE SCLEROSIS
     Route: 042
     Dates: start: 20140206, end: 20140331

REACTIONS (6)
  - Multiple sclerosis relapse [Recovered/Resolved]
  - Erythema [Unknown]
  - Dysphagia [Unknown]
  - Skin disorder [Unknown]
  - Anxiety [Unknown]
  - Chest pain [Unknown]
